FAERS Safety Report 8417248-1 (Version None)
Quarter: 2012Q2

REPORT INFORMATION
  Report Type: 
  Country: None (occurrence: None)
  Receive Date: 20120606
  Receipt Date: 20120604
  Transmission Date: 20120825
  Serious: Yes (Other)
  Sender: FDA-Public Use
  Company Number: US-PFIZER INC-2012084488

PATIENT
  Sex: Female
  Weight: 79.365 kg

DRUGS (5)
  1. LIPITOR [Suspect]
     Dosage: UNK
  2. METFORMIN [Concomitant]
     Indication: DIABETES MELLITUS
     Dosage: UNK
  3. EFFEXOR XR [Suspect]
     Dosage: 75 MG, DAILY
     Dates: start: 20120101
  4. LOSARTAN [Concomitant]
     Indication: HYPERTENSION
     Dosage: UNK
  5. EFFEXOR XR [Suspect]
     Indication: DEPRESSION
     Dosage: THREE CAPSULES OF 75MG DAILY
     Route: 048
     Dates: start: 20070101, end: 20111101

REACTIONS (14)
  - IMPAIRED WORK ABILITY [None]
  - TINNITUS [None]
  - VERTIGO [None]
  - FEELING ABNORMAL [None]
  - DEPRESSION [None]
  - INTENTIONAL DRUG MISUSE [None]
  - DIZZINESS [None]
  - ANXIETY [None]
  - HEADACHE [None]
  - CRYING [None]
  - IMPAIRED DRIVING ABILITY [None]
  - PARAESTHESIA [None]
  - NAUSEA [None]
  - GASTRIC DISORDER [None]
